FAERS Safety Report 4623625-7 (Version None)
Quarter: 2005Q1

REPORT INFORMATION
  Report Type: 
  Country: None (occurrence: None)
  Receive Date: 20050331
  Receipt Date: 20050209
  Transmission Date: 20050727
  Serious: Yes (Other)
  Sender: FDA-Public Use
  Company Number: PHBS2005JP02245

PATIENT
  Age: 81 Year
  Sex: Female
  Weight: 45 kg

DRUGS (3)
  1. PANALDINE [Concomitant]
     Indication: CEREBRAL INFARCTION
     Dosage: 2 DF/DAY
     Route: 048
     Dates: start: 20040706, end: 20050106
  2. TEGRETOL [Concomitant]
     Indication: EPILEPSY
     Dosage: 2 DF/DAY
     Route: 048
     Dates: start: 20040706
  3. LAMISIL [Suspect]
     Indication: NAIL TINEA
     Dosage: 125 MG, QD
     Route: 048
     Dates: start: 20041227, end: 20050113

REACTIONS (12)
  - ASTHMA [None]
  - DERMATITIS EXFOLIATIVE [None]
  - DRUG ERUPTION [None]
  - ECZEMA [None]
  - EOSINOPHIL COUNT INCREASED [None]
  - ERYTHEMA [None]
  - GENERAL PHYSICAL HEALTH DETERIORATION [None]
  - GENERALISED OEDEMA [None]
  - OEDEMA PERIPHERAL [None]
  - PRURITUS [None]
  - PYREXIA [None]
  - SKIN DISORDER [None]
